FAERS Safety Report 12196200 (Version 2)
Quarter: 2016Q1

REPORT INFORMATION
  Report Type: Spontaneous
  Country: IT (occurrence: IT)
  Receive Date: 20160321
  Receipt Date: 20160330
  Transmission Date: 20160526
  Serious: Yes (Hospitalization)
  Sender: FDA-Public Use
  Company Number: IT-JNJFOC-20160316103

PATIENT
  Age: 42 Year
  Sex: Male

DRUGS (14)
  1. DELORAZEPAM [Suspect]
     Active Substance: DELORAZEPAM
     Indication: ANXIETY
     Route: 048
     Dates: start: 20160208, end: 20160208
  2. DELORAZEPAM [Suspect]
     Active Substance: DELORAZEPAM
     Indication: ANXIETY
     Route: 048
  3. CARDIRENE [Suspect]
     Active Substance: ASPIRIN DL-LYSINE
     Indication: PAIN
     Dosage: 1 SACHET
     Route: 048
  4. CARDIRENE [Suspect]
     Active Substance: ASPIRIN DL-LYSINE
     Indication: PAIN
     Route: 048
  5. PROPANOLOL [Suspect]
     Active Substance: PROPRANOLOL HYDROCHLORIDE
     Indication: PRODUCT USED FOR UNKNOWN INDICATION
     Route: 065
  6. DEPAKIN [Suspect]
     Active Substance: VALPROATE SODIUM
     Indication: BIPOLAR DISORDER
     Dosage: PROLONGED RELEASE TABLETS
     Route: 048
  7. DEPAKIN [Suspect]
     Active Substance: VALPROATE SODIUM
     Indication: BIPOLAR DISORDER
     Route: 048
  8. CARBOLITHIUM [Suspect]
     Active Substance: LITHIUM CARBONATE
     Indication: PRODUCT USED FOR UNKNOWN INDICATION
     Route: 065
  9. RISPERIDONE. [Suspect]
     Active Substance: RISPERIDONE
     Indication: PRODUCT USED FOR UNKNOWN INDICATION
     Dosage: DEPOT LAST INJECTION 12 DAYS AGO
     Route: 050
  10. DEPAKIN [Suspect]
     Active Substance: VALPROATE SODIUM
     Indication: BIPOLAR DISORDER
     Route: 048
     Dates: start: 20160208, end: 20160208
  11. DELORAZEPAM [Suspect]
     Active Substance: DELORAZEPAM
     Indication: ANXIETY
     Route: 048
  12. CARDIRENE [Suspect]
     Active Substance: ASPIRIN DL-LYSINE
     Indication: PAIN
     Route: 048
     Dates: start: 20160208, end: 20160208
  13. RISPERIDONE. [Suspect]
     Active Substance: RISPERIDONE
     Indication: BIPOLAR DISORDER
     Route: 048
     Dates: start: 20160208, end: 20160208
  14. RISPERIDONE. [Suspect]
     Active Substance: RISPERIDONE
     Indication: BIPOLAR DISORDER
     Route: 048

REACTIONS (4)
  - Self injurious behaviour [Unknown]
  - Psychomotor retardation [Recovered/Resolved]
  - Intentional overdose [Recovered/Resolved]
  - Sopor [Recovered/Resolved]

NARRATIVE: CASE EVENT DATE: 20160208
